FAERS Safety Report 4683799-9 (Version None)
Quarter: 2005Q2

REPORT INFORMATION
  Report Type: 
  Country: None (occurrence: None)
  Receive Date: 20050602
  Receipt Date: 20050411
  Transmission Date: 20051028
  Serious: No
  Sender: FDA-Public Use
  Company Number: 200421190BWH

PATIENT
  Sex: Male
  Weight: 68.0396 kg

DRUGS (8)
  1. LEVITRA [Suspect]
     Indication: ERECTILE DYSFUNCTION
     Dosage: SEE IMAGE
     Route: 048
     Dates: start: 20040901, end: 20041101
  2. LEVITRA [Suspect]
     Indication: ERECTILE DYSFUNCTION
     Dosage: SEE IMAGE
     Route: 048
     Dates: start: 20041101
  3. KLOR-CON [Concomitant]
  4. AVAPRO [Concomitant]
  5. RITALIN [Concomitant]
  6. PREVACID [Concomitant]
  7. CRESTOR [Concomitant]
  8. TESTOSTERONE [Concomitant]

REACTIONS (6)
  - DEFAECATION URGENCY [None]
  - DIARRHOEA [None]
  - FLATULENCE [None]
  - NASAL CONGESTION [None]
  - RHINORRHOEA [None]
  - VISUAL BRIGHTNESS [None]
